FAERS Safety Report 12779421 (Version 1)
Quarter: 2016Q3

REPORT INFORMATION
  Report Type: Spontaneous
  Country: HR (occurrence: HR)
  Receive Date: 20160926
  Receipt Date: 20160926
  Transmission Date: 20161109
  Serious: Yes (Hospitalization, Other)
  Sender: FDA-Public Use
  Company Number: HR-TEVA-693510ACC

PATIENT
  Sex: Female

DRUGS (2)
  1. HELEX [Suspect]
     Active Substance: ALPRAZOLAM
     Route: 048
     Dates: start: 20160702, end: 20160702
  2. LADIOMIL [Suspect]
     Active Substance: MAPROTILINE HYDROCHLORIDE
     Route: 048
     Dates: start: 20160702, end: 20160702

REACTIONS (2)
  - Suicide attempt [Unknown]
  - Somnolence [Unknown]

NARRATIVE: CASE EVENT DATE: 20160702
